FAERS Safety Report 4936316-X (Version None)
Quarter: 2006Q1

REPORT INFORMATION
  Report Type: 
  Country: None (occurrence: None)
  Receive Date: 20060127
  Receipt Date: 20051121
  Transmission Date: 20060701
  Serious: Yes (Other)
  Sender: FDA-Public Use
  Company Number: 2005159227

PATIENT
  Age: 56 Year
  Sex: Male
  Weight: 95.709 kg

DRUGS (4)
  1. LYRICA [Suspect]
     Indication: NEURALGIA
     Dosage: 150 MG (75 MG, 2 IN 1 D)
     Dates: start: 20051103, end: 20051101
  2. AVANDIA [Concomitant]
  3. GLIPIZIDE (GLIPIZDE) [Concomitant]
  4. ATENOLOL [Concomitant]

REACTIONS (3)
  - ABASIA [None]
  - BACK PAIN [None]
  - NEURALGIA [None]
